FAERS Safety Report 10235128 (Version 1)
Quarter: 2014Q2

REPORT INFORMATION
  Report Type: Spontaneous
  Country: ES (occurrence: ES)
  Receive Date: 20140613
  Receipt Date: 20140613
  Transmission Date: 20141212
  Serious: Yes (Hospitalization)
  Sender: FDA-Public Use
  Company Number: ES-009507513-1406ESP002587

PATIENT
  Age: 66 Year
  Sex: Male
  Weight: 103 kg

DRUGS (5)
  1. PEGINTRON [Suspect]
     Indication: HEPATITIS C
     Dosage: 150 MICROGRAM, QW
     Route: 058
     Dates: start: 20130218, end: 20130418
  2. PEGINTRON [Suspect]
     Dosage: 100 MICROGRAM, QW
     Route: 058
     Dates: start: 20130418, end: 20130509
  3. RIBAVIRIN [Suspect]
     Indication: HEPATITIS C
     Dosage: UNK UNK, BID
     Route: 048
     Dates: start: 20130218, end: 20130304
  4. RIBAVIRIN [Suspect]
     Dosage: UNK
     Route: 048
     Dates: start: 20130304, end: 20130509
  5. INCIVEK [Suspect]
     Indication: HEPATITIS C
     Dosage: 3-0-3 PER DAY FOR 12 WEEKS
     Dates: start: 20130218, end: 20130509

REACTIONS (8)
  - Platelet count decreased [Recovered/Resolved]
  - Anaemia [Recovered/Resolved]
  - White blood cell count decreased [Recovered/Resolved]
  - Gout [Unknown]
  - Oedema [Unknown]
  - Asthenia [Unknown]
  - Dyspnoea [Unknown]
  - Neutropenia [Recovered/Resolved]
